FAERS Safety Report 9605891 (Version 1)
Quarter: 2013Q4

REPORT INFORMATION
  Report Type: Report from Study
  Country: CH (occurrence: CH)
  Receive Date: 20131008
  Receipt Date: 20131008
  Transmission Date: 20140711
  Serious: Yes (Other)
  Sender: FDA-Public Use
  Company Number: CHNY2013CH002160

PATIENT
  Sex: 0

DRUGS (1)
  1. OTRIVIN UNKNOWN [Suspect]
     Dosage: UNK, UNK
     Route: 065

REACTIONS (1)
  - Anosmia [Unknown]
